FAERS Safety Report 21374485 (Version 2)
Quarter: 2022Q4

REPORT INFORMATION
  Report Type: Report from Study
  Country: US (occurrence: US)
  Receive Date: 20220926
  Receipt Date: 20221111
  Transmission Date: 20230113
  Serious: Yes (Hospitalization, Other)
  Sender: FDA-Public Use
  Company Number: US-ABBVIE-4130210

PATIENT
  Age: 65 Year
  Sex: Female
  Weight: 44.452 kg

DRUGS (6)
  1. HUMIRA [Suspect]
     Active Substance: ADALIMUMAB
     Indication: Rheumatoid arthritis
     Route: 058
     Dates: start: 2014
  2. HUMIRA [Suspect]
     Active Substance: ADALIMUMAB
     Dosage: CITRATE FREE; FORM STRENGTH: 40 MILLIGRAM/MILLILITERS
     Route: 058
  3. MODERNA COVID-19 VACCINE [Concomitant]
     Active Substance: ELASOMERAN
     Indication: COVID-19 immunisation
     Dosage: THIRD DOSE; FREQUENCY: ONE TIME ONCE
     Route: 030
     Dates: start: 20210819, end: 20210819
  4. MODERNA COVID-19 VACCINE [Concomitant]
     Active Substance: ELASOMERAN
     Indication: COVID-19 immunisation
     Dosage: FIRST DOSE; FREQUENCY: ONE TIME ONCE
     Route: 030
     Dates: start: 20210204, end: 20210204
  5. MODERNA COVID-19 VACCINE [Concomitant]
     Active Substance: ELASOMERAN
     Indication: COVID-19 immunisation
     Dosage: SECOND DOSE; FREQUENCY: ONE TIME ONCE
     Route: 030
     Dates: start: 20210315, end: 20210315
  6. MODERNA COVID-19 VACCINE [Concomitant]
     Active Substance: ELASOMERAN
     Indication: COVID-19 immunisation
     Dosage: FOURTH DOSE; FREQUENCY: ONE TIME ONCE
     Route: 030
     Dates: start: 20220415, end: 20220415

REACTIONS (3)
  - Volvulus of small bowel [Recovered/Resolved]
  - Intestinal resection [Unknown]
  - Hospitalisation [Unknown]

NARRATIVE: CASE EVENT DATE: 20220713
